FAERS Safety Report 10238968 (Version 1)
Quarter: 2014Q1

REPORT INFORMATION
  Report Type: Spontaneous
  Country: US (occurrence: None)
  Receive Date: 20140306
  Receipt Date: 20140306
  Transmission Date: 20141002
  Serious: Yes (Hospitalization)
  Sender: FDA-Public Use
  Company Number: 163-21880-13040603

PATIENT
  Age: 69 Year
  Sex: Male
  Weight: 93.5 kg

DRUGS (12)
  1. REVLIMID (LENALIDOMIDE) (CAPSULES) [Suspect]
     Indication: PLASMA CELL MYELOMA
     Dosage: 25 MG, 21 IN 28 D, PO
     Route: 048
     Dates: start: 20130228, end: 20130401
  2. MLN9708/PLACEBO [Suspect]
     Indication: PLASMA CELL MYELOMA
     Dosage: 4 MG, 3 IN 28 D, PO
     Route: 048
     Dates: start: 20130228, end: 20130401
  3. DEXAMETHASONE (DEXAMETHASONE) (UNKNOWN) [Suspect]
     Indication: PLASMA CELL MYELOMA
     Dosage: 40 MG, 4 IN 28 D, PO
     Route: 048
     Dates: start: 20130228, end: 20130401
  4. NEUTRA PHOS (NEUTRA-PHOS) (UNKNOWN) [Concomitant]
  5. ASPIRIN (ACETYLSALICYLIC ACID) (UNKNOWN) (ACETYLSALICYLIC ACID) [Concomitant]
  6. LEVEMIR (INSULIN DETEMIR) (UNKNOWN) [Concomitant]
  7. MORPHINE (MORPHINE) (UNKNOWN) (MORPHINE) [Concomitant]
  8. LOMOTIL (LOMOTIL) (UNKNOWN) [Concomitant]
  9. VITAMIN D (ERGOCALCIFEROL) (UNKNOWN) [Concomitant]
  10. ALFUZOSIN (ALFUZOSIN) (UNKNOWN) [Concomitant]
  11. FOLIC ACID (FOLIC ACID) (UNKNOWN) [Concomitant]
  12. IMODIUM (LOPERAMIDE HYDROCHLORIDE) (UNKNOWN) [Concomitant]

REACTIONS (1)
  - Pneumonia [None]
